FAERS Safety Report 12279096 (Version 1)
Quarter: 2016Q2

REPORT INFORMATION
  Report Type: Report from Study
  Country: US (occurrence: US)
  Receive Date: 20160418
  Receipt Date: 20160418
  Transmission Date: 20160815
  Serious: No
  Sender: FDA-Public Use
  Company Number: US-AMGEN-USASL2016045367

PATIENT
  Age: 63 Year
  Sex: Female

DRUGS (1)
  1. ENBREL [Suspect]
     Active Substance: ETANERCEPT
     Indication: RHEUMATOID ARTHRITIS
     Dosage: 50 MG, WEEKLY
     Route: 065
     Dates: start: 20151231, end: 20160324

REACTIONS (7)
  - Arthralgia [Unknown]
  - Depression [Unknown]
  - Crying [Unknown]
  - Palpitations [Unknown]
  - Inflammation [Unknown]
  - Memory impairment [Unknown]
  - Panic attack [Unknown]
